FAERS Safety Report 7716259-9 (Version None)
Quarter: 2011Q3

REPORT INFORMATION
  Report Type: 
  Country: None (occurrence: None)
  Receive Date: 20110829
  Receipt Date: 20100113
  Transmission Date: 20111222
  Serious: Yes (Hospitalization, Other)
  Sender: FDA-Public Use
  Company Number: PHHY2010TW13818

PATIENT
  Sex: Female

DRUGS (1)
  1. GLEEVEC [Suspect]
     Indication: GASTROINTESTINAL STROMAL TUMOUR
     Dosage: 400 MG, UNK

REACTIONS (13)
  - DISCOMFORT [None]
  - RENAL IMPAIRMENT [None]
  - DEPRESSION [None]
  - DYSURIA [None]
  - PLEURAL EFFUSION [None]
  - ASTHENIA [None]
  - OEDEMA [None]
  - RENAL DISORDER [None]
  - ABSCESS RUPTURE [None]
  - ARTERIOVENOUS FISTULA THROMBOSIS [None]
  - ANAEMIA [None]
  - DYSPNOEA [None]
  - RENAL ATROPHY [None]
